FAERS Safety Report 4535247-7 (Version None)
Quarter: 2004Q4

REPORT INFORMATION
  Report Type: 
  Country: None (occurrence: None)
  Receive Date: 20041214
  Receipt Date: 20041105
  Transmission Date: 20050328
  Serious: No
  Sender: FDA-Public Use
  Company Number: 2004243180US

PATIENT
  Sex: Male

DRUGS (2)
  1. BEXTRA [Suspect]
     Indication: ARTHRALGIA
     Dosage: 10 MG, QD
  2. METHADONE (METHADONE) [Concomitant]

REACTIONS (1)
  - DYSARTHRIA [None]
